FAERS Safety Report 24436361 (Version 1)
Quarter: 2024Q4

REPORT INFORMATION
  Report Type: Spontaneous
  Country: IT (occurrence: IT)
  Receive Date: 20241015
  Receipt Date: 20241015
  Transmission Date: 20250114
  Serious: Yes (Hospitalization)
  Sender: RYAN LABORATORIES LLC
  Company Number: IT-Ryan-000002

PATIENT
  Age: 12 Month
  Sex: Male

DRUGS (4)
  1. NITRAZEPAM [Concomitant]
     Active Substance: NITRAZEPAM
     Indication: Infantile spasms
     Route: 065
  2. VALPROIC ACID [Concomitant]
     Active Substance: VALPROIC ACID
     Indication: Infantile spasms
     Route: 065
  3. RUFINAMIDE [Concomitant]
     Active Substance: RUFINAMIDE
     Indication: Infantile spasms
     Route: 065
  4. VIGABATRIN [Suspect]
     Active Substance: VIGABATRIN
     Indication: Infantile spasms
     Route: 065

REACTIONS (3)
  - Hyperkinesia [Recovered/Resolved]
  - Lethargy [Recovered/Resolved]
  - Magnetic resonance imaging head abnormal [Recovered/Resolved]
